FAERS Safety Report 10945673 (Version 1)
Quarter: 2015Q1

REPORT INFORMATION
  Report Type: Spontaneous
  Country: US (occurrence: US)
  Receive Date: 20150323
  Receipt Date: 20150323
  Transmission Date: 20150721
  Serious: Yes (Life-Threatening, Hospitalization)
  Sender: FDA-Public Use
  Company Number: US-BAYER-2015-037929

PATIENT
  Age: 22 Year
  Sex: Female

DRUGS (1)
  1. MIRENA [Suspect]
     Active Substance: LEVONORGESTREL
     Dosage: 20 MCG/24HR, CONT
     Route: 015
     Dates: start: 201003, end: 20140130

REACTIONS (11)
  - General physical health deterioration [None]
  - Anxiety [None]
  - Abdominal pain [None]
  - Infection [None]
  - Drug ineffective [None]
  - Injury [None]
  - Uterine perforation [None]
  - Pain [None]
  - Pregnancy with contraceptive device [None]
  - Anhedonia [None]
  - Emotional distress [None]

NARRATIVE: CASE EVENT DATE: 20131120
